FAERS Safety Report 5014495-6 (Version None)
Quarter: 2006Q2

REPORT INFORMATION
  Report Type: 
  Country: None (occurrence: None)
  Receive Date: 20060531
  Receipt Date: 20060521
  Transmission Date: 20061013
  Serious: Yes (Other)
  Sender: FDA-Public Use
  Company Number: ZA-NOVOPROD-253499

PATIENT
  Age: 50 Year
  Sex: Male
  Weight: 86 kg

DRUGS (5)
  1. INSULATARD PENFILL HM(GE) 3.0 ML [Suspect]
     Indication: DIABETES MELLITUS INSULIN-DEPENDENT
     Dosage: 58 IU, QD
     Route: 058
     Dates: start: 20040701
  2. CONCERTA [Concomitant]
     Dosage: 32 MG, QD
     Route: 048
     Dates: start: 20050413, end: 20050512
  3. RITALIN LA [Concomitant]
     Dosage: 40 MG, QD
     Route: 048
     Dates: start: 20050413, end: 20050609
  4. ETHIPRAMINE [Concomitant]
     Dosage: 25 MG, QD
     Route: 048
     Dates: start: 20050601
  5. NOVORAPID PENFILL [Suspect]
     Route: 058
     Dates: start: 20040701

REACTIONS (1)
  - LOSS OF CONSCIOUSNESS [None]
